FAERS Safety Report 10411303 (Version 1)
Quarter: 2014Q3

REPORT INFORMATION
  Report Type: Spontaneous
  Country: CH (occurrence: CH)
  Receive Date: 20140826
  Receipt Date: 20140826
  Transmission Date: 20150326
  Serious: Yes (Hospitalization)
  Sender: FDA-Public Use
  Company Number: CH-MYLAN-2014M1002489

PATIENT

DRUGS (1)
  1. DIGOXIN. [Suspect]
     Active Substance: DIGOXIN
     Indication: ATRIAL FIBRILLATION
     Dosage: 0.25 MG EVERY DAY
     Route: 065

REACTIONS (11)
  - Dysphagia [None]
  - Chromatopsia [None]
  - Illusion [None]
  - Autonomic nervous system imbalance [None]
  - Photopsia [None]
  - Vomiting [None]
  - Vision blurred [None]
  - Cardioactive drug level increased [None]
  - Toxicity to various agents [None]
  - Hallucination, visual [None]
  - Nausea [None]
